FAERS Safety Report 21404412 (Version 1)
Quarter: 2022Q4

REPORT INFORMATION
  Report Type: Spontaneous
  Country: US (occurrence: US)
  Receive Date: 20221003
  Receipt Date: 20221003
  Transmission Date: 20230113
  Serious: No
  Sender: FDA-Public Use
  Company Number: US-SA-SAC20220930001463

PATIENT
  Sex: Female
  Weight: 115.6 kg

DRUGS (19)
  1. DUPIXENT [Suspect]
     Active Substance: DUPILUMAB
     Indication: Dermatitis atopic
     Dosage: 300 MG, QOW
     Route: 058
     Dates: start: 201911
  2. CALCIUM WITH VITAMIN D 3 [Concomitant]
  3. CLENPIQ [Concomitant]
     Active Substance: ANHYDROUS CITRIC ACID\MAGNESIUM OXIDE\SODIUM PICOSULFATE
  4. LISINOPRIL [Concomitant]
     Active Substance: LISINOPRIL
  5. LISINOPRIL [Concomitant]
     Active Substance: LISINOPRIL
  6. AZELASTINE HYDROCHLORIDE [Concomitant]
     Active Substance: AZELASTINE HYDROCHLORIDE
  7. EXCEDRIN MIGRAINE [Concomitant]
     Active Substance: ACETAMINOPHEN\ASPIRIN\CAFFEINE
  8. CHILDREN^S ALLEGRA ALLERGY [Concomitant]
     Active Substance: FEXOFENADINE HYDROCHLORIDE
  9. PREMARIN [Concomitant]
     Active Substance: ESTROGENS, CONJUGATED
  10. PARAFFIN [Concomitant]
     Active Substance: PARAFFIN
  11. BETAMETHASONE DIPROPIONATE [Concomitant]
     Active Substance: BETAMETHASONE DIPROPIONATE
  12. TRIAMCINOLONE ACETONIDE [Concomitant]
     Active Substance: TRIAMCINOLONE ACETONIDE
  13. XOPENEX [Concomitant]
     Active Substance: LEVALBUTEROL HYDROCHLORIDE
  14. IBUPROFEN [Concomitant]
     Active Substance: IBUPROFEN
  15. METFORMIN HYDROCHLORIDE [Concomitant]
     Active Substance: METFORMIN HYDROCHLORIDE
  16. LACTOBACILLUS ACIDOPHILUS [Concomitant]
     Active Substance: LACTOBACILLUS ACIDOPHILUS
  17. EXCEDRIN EXTRA STRENGTH [Concomitant]
     Active Substance: ACETAMINOPHEN\ASPIRIN\CAFFEINE
  18. VITAMINS NOS [Concomitant]
     Active Substance: VITAMINS
  19. CORICIDIN HBP CHEST CONGESTION AND COUGH [Concomitant]
     Active Substance: DEXTROMETHORPHAN HYDROBROMIDE\GUAIFENESIN

REACTIONS (1)
  - Fungal foot infection [Unknown]
